FAERS Safety Report 5067146-9 (Version None)
Quarter: 2006Q3

REPORT INFORMATION
  Report Type: 
  Country: None (occurrence: None)
  Receive Date: 20060726
  Receipt Date: 20060720
  Transmission Date: 20061208
  Serious: Yes (Other)
  Sender: FDA-Public Use
  Company Number: 2006-07-1207

PATIENT
  Sex: Male

DRUGS (2)
  1. ALBUTEROL SULFATE AUTOHALER [Suspect]
     Indication: ASTHMA
     Dosage: Q4H R ORAL AER INH
     Route: 055
     Dates: start: 20060504
  2. ASMANEX (MOMETASONE FUROATE) POWDER FOR INHALATION [Suspect]
     Indication: ASTHMA
     Dosage: 1 PUFF INHALATION
     Route: 055
     Dates: start: 20060101

REACTIONS (2)
  - CHOKING [None]
  - SLEEP APNOEA SYNDROME [None]
